FAERS Safety Report 8514579-1 (Version None)
Quarter: 2012Q3

REPORT INFORMATION
  Report Type: 
  Country: None (occurrence: None)
  Receive Date: 20120717
  Receipt Date: 20120711
  Transmission Date: 20120928
  Serious: Yes (Other)
  Sender: FDA-Public Use
  Company Number: US-JNJFOC-20120516172

PATIENT
  Sex: Female
  Weight: 56.7 kg

DRUGS (5)
  1. REMICADE [Suspect]
     Indication: CROHN'S DISEASE
     Route: 042
     Dates: start: 20100101
  2. NORCO [Concomitant]
  3. METHOTREXATE [Concomitant]
  4. WELLBUTRIN [Concomitant]
  5. PREDNISONE [Suspect]
     Indication: PRODUCT USED FOR UNKNOWN INDICATION

REACTIONS (8)
  - OEDEMA PERIPHERAL [None]
  - DRUG INEFFECTIVE [None]
  - SWELLING [None]
  - APHAGIA [None]
  - JOINT SWELLING [None]
  - WEIGHT INCREASED [None]
  - SWELLING FACE [None]
  - ARTHRITIS [None]
